FAERS Safety Report 6285565-X (Version None)
Quarter: 2009Q3

REPORT INFORMATION
  Report Type: 
  Country: None (occurrence: None)
  Receive Date: 20090727
  Receipt Date: 20090715
  Transmission Date: 20100115
  Serious: Yes (Death, Hospitalization, Disabling, Other)
  Sender: FDA-Public Use
  Company Number: US-TYCO HEALTHCARE/MALLINCKRODT-T200700886

PATIENT

DRUGS (13)
  1. OPTIMARK [Suspect]
     Indication: NUCLEAR MAGNETIC RESONANCE IMAGING
     Dosage: UNK, SINGLE
     Dates: start: 20041011, end: 20041011
  2. OPTIMARK [Suspect]
     Indication: ANGIOGRAM
  3. NEXIUM [Concomitant]
     Indication: DYSPEPSIA
     Dosage: 40 MG, EVERY OTHER DAY
  4. PHENYTOIN SODIUM CAP [Concomitant]
     Indication: CONVULSION
     Dosage: 100 MG, QID
  5. NEPHROCAPS [Concomitant]
     Indication: VITAMIN B COMPLEX DEFICIENCY
     Dosage: ONE DAILY, QD
     Dates: start: 19970101
  6. NEPHROCAPS [Concomitant]
     Indication: ANAEMIA
  7. PROPOXYPHENE HCL CAP [Concomitant]
     Indication: PAIN IN EXTREMITY
     Dosage: UNK, PRN
     Dates: start: 20070101, end: 20080101
  8. RANITIDINE [Concomitant]
     Indication: DYSPEPSIA
     Dosage: 150 MG, EVERY OTHER DAY
  9. RENAL CAPS [Concomitant]
     Indication: DRUG THERAPY
     Dosage: 6 WITH MEALS, 2 WITH SNACKS
  10. ERYTHROPOETIN [Concomitant]
     Indication: ANAEMIA
     Dosage: GIVEN AT DIALYSIS
     Dates: start: 19970101
  11. IRON SUCROSE [Concomitant]
     Indication: ANAEMIA
     Dosage: GIVEN AT DIALYSIS
     Dates: start: 19970101
  12. HEPARIN [Concomitant]
     Indication: ANTICOAGULANT THERAPY
     Dates: start: 19970101
  13. ASPIRIN [Concomitant]
     Indication: ANTICOAGULANT THERAPY
     Dates: start: 20080101

REACTIONS (23)
  - ACTIVITIES OF DAILY LIVING IMPAIRED [None]
  - ARRHYTHMIA [None]
  - ARTERIAL RUPTURE [None]
  - ASTHENIA [None]
  - BEDRIDDEN [None]
  - BRONCHITIS [None]
  - CONVULSION [None]
  - DECREASED APPETITE [None]
  - FALL [None]
  - FATIGUE [None]
  - FLUID RETENTION [None]
  - FUNGAL INFECTION [None]
  - HAEMORRHAGE INTRACRANIAL [None]
  - INCONTINENCE [None]
  - LIMB INJURY [None]
  - LUNG INFECTION [None]
  - MEMORY IMPAIRMENT [None]
  - NEPHROGENIC SYSTEMIC FIBROSIS [None]
  - OEDEMA PERIPHERAL [None]
  - OFF LABEL USE [None]
  - POST PROCEDURAL DISCOMFORT [None]
  - SKIN CANCER [None]
  - WEIGHT DECREASED [None]
